FAERS Safety Report 12354784 (Version 1)
Quarter: 2016Q2

REPORT INFORMATION
  Report Type: Spontaneous
  Country: US (occurrence: None)
  Receive Date: 20160510
  Receipt Date: 20160510
  Transmission Date: 20160815
  Serious: No
  Sender: FDA-Public Use
  Company Number: None

PATIENT
  Age: 26 Year
  Sex: Male
  Weight: 72.58 kg

DRUGS (1)
  1. AMPHETAMINE SALTS 20MG TABLETS, 20 MG AUROBINDO PHARMA [Suspect]
     Active Substance: AMPHETAMINE ASPARTATE\AMPHETAMINE SULFATE\DEXTROAMPHETAMINE SACCHARATE\DEXTROAMPHETAMINE SULFATE
     Indication: ATTENTION DEFICIT/HYPERACTIVITY DISORDER
     Route: 048
     Dates: start: 20160501, end: 20160509

REACTIONS (10)
  - Headache [None]
  - Product formulation issue [None]
  - Drug effect variable [None]
  - Ear discomfort [None]
  - Flushing [None]
  - Disturbance in attention [None]
  - Drug ineffective [None]
  - Feeling hot [None]
  - Product substitution issue [None]
  - Nausea [None]

NARRATIVE: CASE EVENT DATE: 20160501
